FAERS Safety Report 7078692-0 (Version None)
Quarter: 2010Q4

REPORT INFORMATION
  Report Type: 
  Country: None (occurrence: None)
  Receive Date: 20101102
  Receipt Date: 20101022
  Transmission Date: 20110411
  Serious: Yes (Hospitalization)
  Sender: FDA-Public Use
  Company Number: CA-JNJFOC-20101005631

PATIENT
  Sex: Male
  Weight: 91 kg

DRUGS (3)
  1. REMICADE [Suspect]
     Indication: CROHN'S DISEASE
     Route: 042
  2. REMICADE [Suspect]
     Route: 042
  3. CIPROFLOXACIN [Concomitant]

REACTIONS (5)
  - COUGH [None]
  - CROHN'S DISEASE [None]
  - LUNG NEOPLASM [None]
  - NEPHROLITHIASIS [None]
  - PNEUMONIA [None]
